FAERS Safety Report 11241915 (Version 3)
Quarter: 2015Q3

REPORT INFORMATION
  Report Type: Spontaneous
  Country: IT (occurrence: IT)
  Receive Date: 20150706
  Receipt Date: 20150806
  Transmission Date: 20151125
  Serious: Yes (Death)
  Sender: FDA-Public Use
  Company Number: IT-EMD SERONO-8032105

PATIENT
  Age: 36 Year
  Sex: Male

DRUGS (3)
  1. XATRAL [Concomitant]
     Active Substance: ALFUZOSIN
     Indication: PRODUCT USED FOR UNKNOWN INDICATION
     Route: 048
     Dates: start: 20130710
  2. REBIF [Suspect]
     Active Substance: INTERFERON BETA-1A
     Indication: MULTIPLE SCLEROSIS
     Dosage: 44 MCG (12 MUI)/0.5 ML
     Route: 058
     Dates: start: 20120810, end: 20140523
  3. ANTALGIL [Concomitant]
     Active Substance: IBUPROFEN
     Indication: PRODUCT USED FOR UNKNOWN INDICATION
     Route: 048
     Dates: start: 20120810, end: 20140523

REACTIONS (1)
  - Colon cancer metastatic [Fatal]

NARRATIVE: CASE EVENT DATE: 20140523
